FAERS Safety Report 18818017 (Version 1)
Quarter: 2021Q1

REPORT INFORMATION
  Report Type: Spontaneous
  Country: GB (occurrence: GB)
  Receive Date: 20210202
  Receipt Date: 20210202
  Transmission Date: 20210419
  Serious: Yes (Life-Threatening, Hospitalization, Other)
  Sender: FDA-Public Use
  Company Number: GB-MICRO LABS LIMITED-ML2021-00234

PATIENT
  Age: 55 Year
  Sex: Male

DRUGS (1)
  1. ATORVASTATIN [Suspect]
     Active Substance: ATORVASTATIN
     Indication: MYOCARDIAL INFARCTION
     Dates: start: 2012

REACTIONS (3)
  - Autoimmune myositis [Recovered/Resolved]
  - Musculoskeletal toxicity [Recovered/Resolved]
  - Necrotising myositis [Recovered/Resolved]

NARRATIVE: CASE EVENT DATE: 2018
